FAERS Safety Report 14026435 (Version 3)
Quarter: 2020Q2

REPORT INFORMATION
  Report Type: Spontaneous
  Country: GB (occurrence: GB)
  Receive Date: 20170929
  Receipt Date: 20200609
  Transmission Date: 20200713
  Serious: Yes (Hospitalization)
  Sender: FDA-Public Use
  Company Number: GB-BIOGEN-2017BI00460658

PATIENT
  Sex: Female

DRUGS (1)
  1. AVONEX [Suspect]
     Active Substance: INTERFERON BETA-1A
     Indication: MULTIPLE SCLEROSIS
     Dosage: 6 MEGA U/0.5 ML
     Route: 030

REACTIONS (4)
  - Mobility decreased [Unknown]
  - Aphasia [Unknown]
  - Secondary progressive multiple sclerosis [Unknown]
  - Urinary tract infection [Unknown]
